FAERS Safety Report 8493304-7 (Version None)
Quarter: 2012Q3

REPORT INFORMATION
  Report Type: 
  Country: None (occurrence: None)
  Receive Date: 20120706
  Receipt Date: 20120703
  Transmission Date: 20120928
  Serious: No
  Sender: FDA-Public Use
  Company Number: US-PFIZER INC-2012093727

PATIENT
  Sex: Male

DRUGS (2)
  1. VIAGRA [Suspect]
     Indication: ERECTILE DYSFUNCTION
     Dosage: 100 MG, DAILY AS NEEDED
     Route: 048
     Dates: start: 20070807
  2. XALATAN [Suspect]
     Dosage: UNK

REACTIONS (1)
  - BLOOD PRESSURE ABNORMAL [None]
